FAERS Safety Report 6085280-1 (Version None)
Quarter: 2009Q1

REPORT INFORMATION
  Report Type: 
  Country: None (occurrence: None)
  Receive Date: 20090218
  Receipt Date: 20090213
  Transmission Date: 20090719
  Serious: Yes (Hospitalization)
  Sender: FDA-Public Use
  Company Number: 2009S1002103

PATIENT
  Age: 64 Year
  Sex: Male

DRUGS (5)
  1. SOTALOL HCL [Suspect]
     Indication: HYPERTENSION
     Dosage: 80 ; DAILY ORAL
     Route: 048
  2. CLARITHROMYCIN [Suspect]
     Indication: RESPIRATORY TRACT INFECTION
     Dosage: 500 ; Q12H
     Dates: start: 20081102, end: 20081111
  3. CLARIPEN (CLARITHROMYCIN) [Concomitant]
  4. OLMETEC PLUS (BENICAR HCT) [Concomitant]
  5. VASEXTEN (BARNIDIPINE HYDROCHLORIDE) [Concomitant]

REACTIONS (2)
  - DRUG INTERACTION [None]
  - EPILEPSY [None]
